FAERS Safety Report 11398483 (Version 2)
Quarter: 2015Q3

REPORT INFORMATION
  Report Type: Spontaneous
  Country: NO (occurrence: NO)
  Receive Date: 20150820
  Receipt Date: 20150917
  Transmission Date: 20151125
  Serious: Yes (Hospitalization, Other)
  Sender: FDA-Public Use
  Company Number: NO-AMGEN-NORSP2015084672

PATIENT
  Age: 21 Year
  Sex: Male

DRUGS (4)
  1. CIMZIA [Suspect]
     Active Substance: CERTOLIZUMAB PEGOL
     Indication: ANKYLOSING SPONDYLITIS
     Dosage: 200 MG, 2X/WEEK
     Route: 058
     Dates: start: 20141209, end: 20150102
  2. ENBREL [Suspect]
     Active Substance: ETANERCEPT
     Indication: ANKYLOSING SPONDYLITIS
     Dosage: 50 MG, WEEKLY
     Route: 058
     Dates: start: 2007, end: 20141209
  3. METHOTREXATE SODIUM. [Suspect]
     Active Substance: METHOTREXATE SODIUM
     Indication: ANKYLOSING SPONDYLITIS
     Dosage: 10MG, WEEKLY
     Route: 048
     Dates: start: 2007, end: 201501
  4. FOLSYRE NAF [Concomitant]
     Active Substance: FOLIC ACID
     Dosage: 6 MG, WEEKLY
     Route: 048
     Dates: start: 2007, end: 20150102

REACTIONS (4)
  - Drug effect decreased [Unknown]
  - Latent tuberculosis [Recovering/Resolving]
  - Tuberculosis [Recovering/Resolving]
  - Tuberculosis [Recovering/Resolving]

NARRATIVE: CASE EVENT DATE: 2013
